FAERS Safety Report 15413904 (Version 2)
Quarter: 2020Q1

REPORT INFORMATION
  Report Type: Report from Study
  Country: US (occurrence: US)
  Receive Date: 20180921
  Receipt Date: 20200220
  Transmission Date: 20200409
  Serious: Yes (Other)
  Sender: FDA-Public Use
  Company Number: US-SA-2018SA118921

PATIENT
  Age: 35 Year
  Sex: Female

DRUGS (3)
  1. CHLORHEXIDINE [Concomitant]
     Active Substance: CHLORHEXIDINE
     Route: 061
  2. AGALSIDASE BETA [Suspect]
     Active Substance: AGALSIDASE BETA
     Indication: FABRY^S DISEASE
     Dosage: DOSE-125(UNITS NOT PROVIDED) FREUENCY-Q2
     Route: 041
     Dates: start: 20180405
  3. AGALSIDASE BETA [Suspect]
     Active Substance: AGALSIDASE BETA
     Dosage: 125 MG, QOW
     Route: 041
     Dates: start: 20190731

REACTIONS (19)
  - Face oedema [Not Recovered/Not Resolved]
  - Headache [Not Recovered/Not Resolved]
  - Injection site warmth [Not Recovered/Not Resolved]
  - Feeling cold [Not Recovered/Not Resolved]
  - Urine abnormality [Not Recovered/Not Resolved]
  - Injection site erythema [Not Recovered/Not Resolved]
  - Injection site vesicles [Not Recovered/Not Resolved]
  - Sneezing [Recovering/Resolving]
  - Nausea [Not Recovered/Not Resolved]
  - Epistaxis [Not Recovered/Not Resolved]
  - Injection site pain [Not Recovered/Not Resolved]
  - Oropharyngeal pain [Recovering/Resolving]
  - Pyrexia [Recovering/Resolving]
  - Lethargy [Not Recovered/Not Resolved]
  - Rhinorrhoea [Recovering/Resolving]
  - Loss of consciousness [Not Recovered/Not Resolved]
  - Toothache [Not Recovered/Not Resolved]
  - Sinusitis [Recovering/Resolving]
  - Arthralgia [Not Recovered/Not Resolved]

NARRATIVE: CASE EVENT DATE: 2018
